FAERS Safety Report 6203960-1 (Version None)
Quarter: 2009Q2

REPORT INFORMATION
  Report Type: 
  Country: None (occurrence: None)
  Receive Date: 20090527
  Receipt Date: 20090518
  Transmission Date: 20091009
  Serious: Yes (Hospitalization)
  Sender: FDA-Public Use
  Company Number: B0567208A

PATIENT
  Sex: Female

DRUGS (7)
  1. LAMICTAL [Suspect]
     Indication: CYCLOTHYMIC DISORDER
     Route: 048
     Dates: start: 20090122, end: 20090308
  2. DEPAKENE [Concomitant]
     Indication: CYCLOTHYMIC DISORDER
     Dosage: 600MG PER DAY
     Route: 048
     Dates: start: 20090205
  3. LANDSEN [Concomitant]
     Indication: CYCLOTHYMIC DISORDER
     Dosage: 3G PER DAY
     Route: 048
     Dates: start: 20081219
  4. BARNETIL [Concomitant]
     Indication: SEDATION
     Dosage: 75MG PER DAY
     Route: 048
     Dates: start: 20090207, end: 20090311
  5. ROHYPNOL [Concomitant]
     Indication: HYPNOTHERAPY
     Dosage: 2MG PER DAY
     Route: 048
     Dates: start: 20090122
  6. CHINESE MEDICINE [Concomitant]
     Indication: LAXATIVE SUPPORTIVE CARE
     Dosage: 7.5G PER DAY
     Route: 048
     Dates: start: 20090305, end: 20090311
  7. PURSENNID [Concomitant]
     Indication: LAXATIVE SUPPORTIVE CARE
     Route: 048
     Dates: start: 20090305

REACTIONS (5)
  - DRUG RASH WITH EOSINOPHILIA AND SYSTEMIC SYMPTOMS [None]
  - ERYTHEMA [None]
  - LYMPHADENOPATHY [None]
  - PYREXIA [None]
  - SKIN LESION [None]
